FAERS Safety Report 15970409 (Version 1)
Quarter: 2019Q1

REPORT INFORMATION
  Report Type: Report from Study
  Country: US (occurrence: US)
  Receive Date: 20190215
  Receipt Date: 20190215
  Transmission Date: 20190418
  Serious: Yes (Hospitalization, Other)
  Sender: FDA-Public Use
  Company Number: US-AMAG PHARMACEUTICALS, INC.-AMAG201802764

PATIENT
  Age: 28 Year
  Sex: Female

DRUGS (4)
  1. PRENATAL VITAMINS [Concomitant]
     Active Substance: VITAMINS
     Indication: PREGNANCY
     Dosage: UNK
     Route: 065
     Dates: start: 20180129, end: 20180622
  2. RANITIDINE. [Concomitant]
     Active Substance: RANITIDINE
     Indication: DYSPEPSIA
     Dosage: 150 MG, QD
     Route: 065
     Dates: start: 20180402, end: 20180607
  3. ALBUTEROL. [Concomitant]
     Active Substance: ALBUTEROL
     Indication: ASTHMA
     Dosage: UNK
     Route: 065
  4. MAKENA [Suspect]
     Active Substance: HYDROXYPROGESTERONE CAPROATE
     Indication: PREMATURE DELIVERY
     Dosage: 250 MG/ML, WEEKLY
     Route: 030
     Dates: end: 20180605

REACTIONS (6)
  - Premature separation of placenta [Recovered/Resolved]
  - Premature delivery [Recovered/Resolved]
  - Malaise [Not Recovered/Not Resolved]
  - Anaemia [Unknown]
  - Injection site pain [Not Recovered/Not Resolved]
  - Cervical incompetence [Recovered/Resolved]

NARRATIVE: CASE EVENT DATE: 20180514
